FAERS Safety Report 6242195-3 (Version None)
Quarter: 2009Q2

REPORT INFORMATION
  Report Type: 
  Country: None (occurrence: None)
  Receive Date: 20090624
  Receipt Date: 20090619
  Transmission Date: 20091009
  Serious: Yes (Life-Threatening)
  Sender: FDA-Public Use
  Company Number: IT-BRISTOL-MYERS SQUIBB COMPANY-14676860

PATIENT
  Age: 67 Year
  Sex: Male

DRUGS (3)
  1. ERBITUX [Suspect]
     Indication: RECTAL CANCER
     Dosage: RECENT DOSE ON 20JAN09; ONGOING
     Route: 042
     Dates: start: 20081118
  2. IRINOTECAN HCL [Concomitant]
     Indication: RECTAL CANCER
     Dosage: RECENT DOSE ON 20JAN09
     Dates: start: 20081118
  3. FLUOROURACIL [Concomitant]
     Indication: RECTAL CANCER
     Dosage: RECENT DOSE ON 20JAN09
     Dates: start: 20081118

REACTIONS (2)
  - DIARRHOEA [None]
  - NEUTROPENIA [None]
